FAERS Safety Report 25360327 (Version 1)
Quarter: 2025Q2

REPORT INFORMATION
  Report Type: Report from Study
  Country: GB (occurrence: GB)
  Receive Date: 20250527
  Receipt Date: 20250527
  Transmission Date: 20250717
  Serious: Yes (Death)
  Sender: AMGEN
  Company Number: GB-Vifor (International) Inc.-VIT-2024-06764

PATIENT
  Age: 77 Year
  Sex: Male
  Weight: 98.6 kg

DRUGS (11)
  1. AVACOPAN [Suspect]
     Active Substance: AVACOPAN
     Indication: Anti-neutrophil cytoplasmic antibody positive vasculitis
     Route: 065
  2. PREDNISOLONE [Concomitant]
     Active Substance: PREDNISOLONE
     Indication: Anti-neutrophil cytoplasmic antibody positive vasculitis
     Dosage: 40,MG,QD
     Route: 048
     Dates: start: 20240516
  3. CLOTRIMAZOLE [Concomitant]
     Active Substance: CLOTRIMAZOLE
     Indication: Anti-neutrophil cytoplasmic antibody positive vasculitis
     Dosage: 480,MG,QD
     Route: 048
     Dates: start: 20240516
  4. ALLOPURINOL [Concomitant]
     Active Substance: ALLOPURINOL
     Indication: Gout
     Dosage: 300,MG,QD
     Route: 048
     Dates: start: 202404
  5. ATORVASTATIN [Concomitant]
     Active Substance: ATORVASTATIN
     Indication: Antiplatelet therapy
     Dosage: 80,MG,QD
     Route: 048
     Dates: start: 202404
  6. BISOPROLOL [Concomitant]
     Active Substance: BISOPROLOL
     Indication: Hypertension
     Dosage: 5,MG,QD
     Route: 048
     Dates: start: 202404
  7. CLOPIDOGREL [Concomitant]
     Active Substance: CLOPIDOGREL BISULFATE
     Indication: Hypertension
     Dosage: 75,MG,QD
     Route: 048
  8. EZETIMIBE [Concomitant]
     Active Substance: EZETIMIBE
     Indication: Blood cholesterol increased
     Dosage: 10,MG,QD
     Route: 048
     Dates: start: 202404
  9. RANOLAZINE [Concomitant]
     Active Substance: RANOLAZINE
     Indication: Chest pain
     Dosage: 500,MG,BID
     Route: 048
     Dates: start: 202404
  10. ISOSORBIDE MONONITRATE [Concomitant]
     Active Substance: ISOSORBIDE MONONITRATE
     Indication: Chest pain
     Dosage: 80,MG,QD
     Route: 048
     Dates: start: 202404
  11. CYCLOPHOSPHAMIDE [Concomitant]
     Active Substance: CYCLOPHOSPHAMIDE
     Indication: Anti-neutrophil cytoplasmic antibody positive vasculitis
     Route: 048
     Dates: start: 20240516

REACTIONS (1)
  - Death [Fatal]

NARRATIVE: CASE EVENT DATE: 20240706
